FAERS Safety Report 20224333 (Version 2)
Quarter: 2022Q1

REPORT INFORMATION
  Report Type: Spontaneous
  Country: US (occurrence: US)
  Receive Date: 20211223
  Receipt Date: 20220127
  Transmission Date: 20220424
  Serious: Yes (Other)
  Sender: FDA-Public Use
  Company Number: US-GE HEALTHCARE-2021CSU006685

PATIENT
  Age: 36 Year
  Sex: Male

DRUGS (2)
  1. OMNIPAQUE [Suspect]
     Active Substance: IOHEXOL
     Indication: Computerised tomogram neck
     Dosage: 75 ML, SINGLE
     Route: 042
     Dates: start: 20211217, end: 20211217
  2. OMNIPAQUE [Suspect]
     Active Substance: IOHEXOL
     Indication: Parotid gland enlargement

REACTIONS (3)
  - Swelling face [Unknown]
  - Erythema [Unknown]
  - Urticaria [Unknown]

NARRATIVE: CASE EVENT DATE: 20211217
